FAERS Safety Report 4865753-7 (Version None)
Quarter: 2005Q4

REPORT INFORMATION
  Report Type: 
  Country: None (occurrence: None)
  Receive Date: 20051223
  Receipt Date: 20051026
  Transmission Date: 20060501
  Serious: Yes (Life-Threatening, Hospitalization, Disabling, Other)
  Sender: FDA-Public Use
  Company Number: PHBS2005JP15774

PATIENT
  Age: 50 Year
  Sex: Male
  Weight: 64 kg

DRUGS (12)
  1. PREDONINE [Concomitant]
     Indication: NEPHROTIC SYNDROME
     Dosage: 10 MG/D
     Route: 048
     Dates: start: 20050322
  2. BREDININ [Concomitant]
     Indication: NEPHROTIC SYNDROME
     Dosage: 75 MG/D
     Route: 048
     Dates: start: 20050516
  3. NEORAL [Suspect]
     Indication: NEPHROTIC SYNDROME
     Dosage: 100 MG/D
     Route: 048
     Dates: start: 20050826, end: 20050906
  4. NEORAL [Suspect]
     Dosage: 150 MG/D
     Route: 048
     Dates: start: 20050907, end: 20050930
  5. NEORAL [Suspect]
     Dosage: 100 MG/D
     Route: 048
     Dates: start: 20051001, end: 20051019
  6. NEORAL [Suspect]
     Dosage: 75 MG/D
     Route: 048
     Dates: start: 20051020, end: 20051025
  7. NEORAL [Suspect]
     Dosage: 50 MG/D
     Route: 048
     Dates: start: 20051026, end: 20051108
  8. NEORAL [Suspect]
     Route: 048
  9. NU LOTAN [Concomitant]
     Indication: HYPERTENSION
     Dosage: 25 MG/D
     Route: 048
     Dates: start: 20030101
  10. TENORMIN [Concomitant]
     Indication: HYPERTENSION
     Dosage: 25 MG/D
     Route: 048
     Dates: start: 20030101
  11. LIVALO KOWA [Concomitant]
     Indication: HYPERLIPIDAEMIA
     Dosage: 2 MG/D
     Route: 048
     Dates: start: 20040101, end: 20050825
  12. LIPITOR [Concomitant]
     Indication: HYPERLIPIDAEMIA
     Dosage: 10 MG/D
     Route: 048
     Dates: start: 20050826

REACTIONS (7)
  - BLOOD CREATININE INCREASED [None]
  - CEREBRAL INFARCTION [None]
  - DYSARTHRIA [None]
  - GRIP STRENGTH DECREASED [None]
  - JC VIRUS INFECTION [None]
  - LEUKOARAIOSIS [None]
  - PROGRESSIVE MULTIFOCAL LEUKOENCEPHALOPATHY [None]
